FAERS Safety Report 9146488 (Version 1)
Quarter: 2013Q1

REPORT INFORMATION
  Report Type: Spontaneous
  Country: US (occurrence: US)
  Receive Date: 20130307
  Receipt Date: 20130307
  Transmission Date: 20140127
  Serious: No
  Sender: FDA-Public Use
  Company Number: US-GLAXOSMITHKLINE-A0971916A

PATIENT
  Age: 69 Year
  Sex: Female
  Weight: 77.3 kg

DRUGS (8)
  1. VITAMIN C [Concomitant]
  2. VITAMIN D [Concomitant]
  3. ROPINIROLE [Suspect]
     Indication: RESTLESS LEGS SYNDROME
     Dosage: 2MG TWICE PER DAY
     Route: 048
     Dates: start: 201201
  4. LORAZEPAM [Concomitant]
  5. LEXAPRO [Concomitant]
  6. BUPROPION HYDROCHLORIDE [Concomitant]
  7. LIPITOR [Concomitant]
  8. MAGNESIUM [Concomitant]

REACTIONS (3)
  - Somnolence [Recovered/Resolved]
  - Drug administration error [Unknown]
  - Dyskinesia [Unknown]
